FAERS Safety Report 16735466 (Version 1)
Quarter: 2019Q3

REPORT INFORMATION
  Report Type: Spontaneous
  Country: JP (occurrence: JP)
  Receive Date: 20190823
  Receipt Date: 20190823
  Transmission Date: 20191005
  Serious: Yes (Other)
  Sender: FDA-Public Use
  Company Number: JP-PFIZER INC-2019348385

PATIENT

DRUGS (1)
  1. ZITHROMAC SR 2G [Suspect]
     Active Substance: AZITHROMYCIN MONOHYDRATE
     Indication: OPPORTUNISTIC INFECTION
     Dosage: UNK
     Route: 048

REACTIONS (5)
  - Stomach mass [Unknown]
  - Gastric mucosal lesion [Unknown]
  - Gastric ulcer [Unknown]
  - Polyp [Unknown]
  - Abdominal pain upper [Unknown]
